FAERS Safety Report 5801886-6 (Version None)
Quarter: 2008Q3

REPORT INFORMATION
  Report Type: 
  Country: None (occurrence: None)
  Receive Date: 20080702
  Receipt Date: 20080627
  Transmission Date: 20090109
  Serious: Yes (Hospitalization)
  Sender: FDA-Public Use
  Company Number: THQ2008A01094

PATIENT
  Sex: Male

DRUGS (1)
  1. ACTOS [Suspect]
     Indication: DIABETES MELLITUS
     Dosage: 30 MG PER ORAL
     Route: 048
     Dates: start: 20080401, end: 20080601

REACTIONS (7)
  - AMNESIA [None]
  - DECREASED APPETITE [None]
  - DISTURBANCE IN ATTENTION [None]
  - DIZZINESS [None]
  - FALL [None]
  - FLUID RETENTION [None]
  - WEIGHT INCREASED [None]
